FAERS Safety Report 4371489-1 (Version None)
Quarter: 2004Q2

REPORT INFORMATION
  Report Type: 
  Country: None (occurrence: None)
  Receive Date: 20040602
  Receipt Date: 20040520
  Transmission Date: 20050107
  Serious: Yes (Death, Other)
  Sender: FDA-Public Use
  Company Number: 2004028507

PATIENT
  Age: 32 Year
  Sex: Male

DRUGS (4)
  1. NEURONTIN [Suspect]
     Indication: PAIN
     Dosage: 1800 MG (600 MG, 3 IN 1 D), UNKNOWN
     Dates: start: 20040330, end: 20040404
  2. METHADONE HCL [Suspect]
     Indication: PAIN
     Dosage: 40 MG (10 MG, 4 IN 1 D), UNKNOWN
  3. OXCARBAZEPINE (OXCARBAZEPINE) [Concomitant]
  4. LORAZEPAM [Concomitant]

REACTIONS (3)
  - DYSPNOEA [None]
  - FEELING ABNORMAL [None]
  - RESPIRATORY ARREST [None]
